FAERS Safety Report 5062935-9 (Version None)
Quarter: 2006Q3

REPORT INFORMATION
  Report Type: 
  Country: None (occurrence: None)
  Receive Date: 20060724
  Receipt Date: 20060714
  Transmission Date: 20061208
  Serious: Yes (Life-Threatening, Hospitalization)
  Sender: FDA-Public Use
  Company Number: 2004-03-0399

PATIENT
  Age: 55 Year
  Sex: Male
  Weight: 73 kg

DRUGS (6)
  1. TEMOZOLOMIDE CAPSULES [Suspect]
     Indication: GLIOBLASTOMA MULTIFORME
     Dosage: 180 MG QD* ORAL
     Route: 048
     Dates: start: 20030915, end: 20031006
  2. TEMOZOLOMIDE CAPSULES [Suspect]
     Indication: GLIOBLASTOMA MULTIFORME
     Dosage: 180 MG QD* ORAL
     Route: 048
     Dates: start: 20031013, end: 20031102
  3. TEMOZOLOMIDE CAPSULES [Suspect]
     Indication: GLIOBLASTOMA MULTIFORME
     Dosage: 180 MG QD* ORAL
     Route: 048
     Dates: start: 20030915, end: 20031125
  4. TEMOZOLOMIDE CAPSULES [Suspect]
     Indication: GLIOBLASTOMA MULTIFORME
     Dosage: 180 MG QD* ORAL
     Route: 048
     Dates: start: 20031110, end: 20031125
  5. RADIATION THERAPY NO DOSE FORM [Suspect]
     Indication: GLIOBLASTOMA MULTIFORME
     Dosage: 2 GY/D 5X/WK
     Dates: start: 20031217, end: 20040126
  6. DEXAMETHASONE TAB [Concomitant]

REACTIONS (22)
  - ASTHENIA [None]
  - CENTRAL NERVOUS SYSTEM ABSCESS [None]
  - DRUG TOLERANCE DECREASED [None]
  - DYSPNOEA [None]
  - HAEMOGLOBIN DECREASED [None]
  - HEADACHE [None]
  - HERPES VIRUS INFECTION [None]
  - IMMUNOSUPPRESSION [None]
  - KAPOSI'S SARCOMA [None]
  - LEUKOPENIA [None]
  - LISTERIOSIS [None]
  - LYMPHOPENIA [None]
  - MENTAL DISORDER [None]
  - NAUSEA [None]
  - NEUROLOGICAL SYMPTOM [None]
  - NEUTROPENIA [None]
  - OPPORTUNISTIC INFECTION [None]
  - PNEUMOCYSTIS JIROVECI PNEUMONIA [None]
  - PYREXIA [None]
  - RESPIRATORY DISORDER [None]
  - SKIN NODULE [None]
  - THROMBOCYTOPENIA [None]
